FAERS Safety Report 22927685 (Version 2)
Quarter: 2023Q4

REPORT INFORMATION
  Report Type: Spontaneous
  Country: JP (occurrence: JP)
  Receive Date: 20230911
  Receipt Date: 20231106
  Transmission Date: 20240110
  Serious: Yes (Other)
  Sender: FDA-Public Use
  Company Number: JP-BEH-2023162997

PATIENT
  Age: 23 Year
  Sex: Male
  Weight: 53 kg

DRUGS (2)
  1. IDELVION [Suspect]
     Active Substance: COAGULATION FACTOR IX RECOMBINANT HUMAN
     Indication: Haemophilia
     Dosage: 3500 INTERNATIONAL UNIT, QW
     Route: 042
     Dates: end: 20230701
  2. IDELVION [Suspect]
     Active Substance: COAGULATION FACTOR IX RECOMBINANT HUMAN
     Indication: Haemophilia
     Dosage: 3500 INTERNATIONAL UNIT, QW
     Route: 042
     Dates: end: 20230701

REACTIONS (2)
  - Muscle haemorrhage [Unknown]
  - Contusion [Unknown]
